FAERS Safety Report 4896611-X (Version None)
Quarter: 2005Q4

REPORT INFORMATION
  Report Type: 
  Country: None (occurrence: None)
  Receive Date: 20051223
  Receipt Date: 20050909
  Transmission Date: 20060501
  Serious: No
  Sender: FDA-Public Use
  Company Number: 05P-163-0308555-00

PATIENT
  Age: 69 Year
  Sex: Female
  Weight: 78.0187 kg

DRUGS (11)
  1. HUMIRA [Suspect]
     Indication: RHEUMATOID ARTHRITIS
     Dosage: 40 MG, 1 IN 2 WK, SUBCUTANEOUS
     Route: 058
     Dates: start: 20050720
  2. LOTREL [Concomitant]
  3. PIROXICAM [Concomitant]
  4. OMEPRAZOLE [Concomitant]
  5. PREDNISONE [Concomitant]
  6. ATENOLOL [Concomitant]
  7. LEVOTHYROINE SODIUM [Concomitant]
  8. VICODIN [Concomitant]
  9. HYDROCHLOROTHIAZIDE [Concomitant]
  10. SERTRALINE HYDROCHLORIDE [Concomitant]
  11. CALTRATE PLUS [Concomitant]

REACTIONS (3)
  - DRUG INEFFECTIVE [None]
  - OEDEMA PERIPHERAL [None]
  - PAIN IN EXTREMITY [None]
